FAERS Safety Report 7468182-5 (Version None)
Quarter: 2011Q2

REPORT INFORMATION
  Report Type: 
  Country: None (occurrence: None)
  Receive Date: 20110509
  Receipt Date: 20100506
  Transmission Date: 20111010
  Serious: No
  Sender: FDA-Public Use
  Company Number: US-SANOFI-AVENTIS-2010SA007842

PATIENT
  Age: 76 Year
  Sex: Male

DRUGS (4)
  1. OPTICLICK [Suspect]
     Dates: start: 20050101
  2. APIDRA [Suspect]
     Dosage: DOSE:15 UNIT(S)
     Route: 058
     Dates: start: 20060101
  3. LANTUS [Suspect]
     Dosage: DOSAGE IS 25-30 UNITS. DOSE:32 UNIT(S)
     Route: 058
     Dates: start: 20060101
  4. ALL OTHER THERAPEUTIC PRODUCTS [Concomitant]

REACTIONS (5)
  - BLOOD GLUCOSE DECREASED [None]
  - DRY SKIN [None]
  - INJECTION SITE HAEMATOMA [None]
  - BLOOD GLUCOSE INCREASED [None]
  - OEDEMA PERIPHERAL [None]
